FAERS Safety Report 15643179 (Version 2)
Quarter: 2018Q4

REPORT INFORMATION
  Report Type: Report from Study
  Country: None (occurrence: US)
  Receive Date: 20181121
  Receipt Date: 20181205
  Transmission Date: 20190205
  Serious: Yes (Hospitalization, Other)
  Sender: FDA-Public Use
  Company Number: US-ABBVIE-18S-163-2559811-00

PATIENT
  Sex: Male
  Weight: 97.61 kg

DRUGS (2)
  1. CREON [Suspect]
     Active Substance: PANCRELIPASE AMYLASE\PANCRELIPASE LIPASE\PANCRELIPASE PROTEASE
     Indication: PANCREATIC CARCINOMA
     Route: 048
     Dates: start: 2017, end: 201809
  2. CREON [Suspect]
     Active Substance: PANCRELIPASE AMYLASE\PANCRELIPASE LIPASE\PANCRELIPASE PROTEASE
     Route: 048
     Dates: start: 201809

REACTIONS (6)
  - Spleen operation [Unknown]
  - Pancreaticoduodenectomy [Unknown]
  - Type 1 diabetes mellitus [Not Recovered/Not Resolved]
  - Impaired work ability [Unknown]
  - Pancreatectomy [Unknown]
  - Pancreatic carcinoma recurrent [Not Recovered/Not Resolved]

NARRATIVE: CASE EVENT DATE: 2017
